FAERS Safety Report 6450161-8 (Version None)
Quarter: 2009Q4

REPORT INFORMATION
  Report Type: 
  Country: None (occurrence: None)
  Receive Date: 20091123
  Receipt Date: 20091110
  Transmission Date: 20100525
  Serious: No
  Sender: FDA-Public Use
  Company Number: JP-ROCHE-663714

PATIENT
  Age: 24 Year
  Sex: Female

DRUGS (2)
  1. TAMIFLU [Suspect]
     Indication: INFLUENZA
     Route: 048
     Dates: start: 20091012, end: 20091013
  2. TAMIFLU [Suspect]
     Route: 048
     Dates: start: 20091014, end: 20091015

REACTIONS (3)
  - ACCIDENTAL OVERDOSE [None]
  - DRUG EXPOSURE DURING PREGNANCY [None]
  - NO ADVERSE EVENT [None]
